FAERS Safety Report 4687850-1 (Version None)
Quarter: 2005Q2

REPORT INFORMATION
  Report Type: 
  Country: None (occurrence: None)
  Receive Date: 20050609
  Receipt Date: 20050609
  Transmission Date: 20051028
  Serious: Yes (Life-Threatening, Hospitalization, Disabling)
  Sender: FDA-Public Use
  Company Number: None

PATIENT
  Age: 63 Year
  Sex: Female

DRUGS (19)
  1. ENBREL [Suspect]
     Indication: RHEUMATOID ARTHRITIS
     Dosage: 25MG  SQ TWICE WEEKLY
     Route: 058
     Dates: start: 20040701, end: 20041201
  2. LEVOTHYROXINE SODIUM [Concomitant]
  3. METFORMIN HCL [Concomitant]
  4. SPIRONOLACTONE [Concomitant]
  5. ASPIRIN [Concomitant]
  6. LISINOPRIL [Concomitant]
  7. K-DUR 10 [Concomitant]
  8. LEXAPRO [Concomitant]
  9. BUPROPION HCL [Concomitant]
  10. DIGOXIN [Concomitant]
  11. FUROSEMIDE [Concomitant]
  12. CARVEDILOL [Concomitant]
  13. DOXYCYCLINE [Concomitant]
  14. AUGMENTIN '125' [Concomitant]
  15. CIPRO [Concomitant]
  16. ALBUTEROL [Concomitant]
  17. ATROVENT [Concomitant]
  18. KENALOG [Concomitant]
  19. FOSINOPRIL SODIUM [Concomitant]

REACTIONS (2)
  - CARDIAC FAILURE CONGESTIVE [None]
  - EJECTION FRACTION DECREASED [None]
